FAERS Safety Report 9325875 (Version 3)
Quarter: 2013Q3

REPORT INFORMATION
  Report Type: Spontaneous
  Country: US (occurrence: US)
  Receive Date: 20130604
  Receipt Date: 20130805
  Transmission Date: 20140515
  Serious: Yes (Hospitalization)
  Sender: FDA-Public Use
  Company Number: US-PFIZER INC-2013167317

PATIENT
  Age: 63 Year
  Sex: Male
  Weight: 73 kg

DRUGS (10)
  1. LYRICA [Suspect]
     Indication: PAIN IN EXTREMITY
     Dosage: 100 MG, 2X/DAY
  2. HYDROMORPHONE [Suspect]
     Indication: PAIN IN EXTREMITY
     Dosage: UNK, AS NEEDED
  3. METOPROLOL [Concomitant]
     Indication: CARDIAC DISORDER
     Dosage: 25 MG, UNK
  4. PLAVIX [Concomitant]
     Dosage: 75 MG, UNK
  5. IRON [Concomitant]
     Dosage: 65 MG, UNK
  6. BABY ASPIRIN [Concomitant]
     Dosage: UNK
  7. PANTOPRAZOLE [Concomitant]
     Dosage: 40 MG, UNK
  8. CYMBALTA [Concomitant]
     Dosage: 30 MG, UNK
  9. ATORVASTATIN CALCIUM [Concomitant]
     Dosage: 40 MG, UNK
  10. LASIX [Concomitant]
     Indication: BLADDER DISORDER
     Dosage: 40 MG, UNK

REACTIONS (3)
  - Cardiac disorder [Unknown]
  - Poor peripheral circulation [Unknown]
  - Tremor [Unknown]
